FAERS Safety Report 9297589 (Version 1)
Quarter: 2013Q2

REPORT INFORMATION
  Report Type: Spontaneous
  Country: US (occurrence: US)
  Receive Date: 20130520
  Receipt Date: 20130520
  Transmission Date: 20140414
  Serious: No
  Sender: FDA-Public Use
  Company Number: US-PFIZER INC-2013154414

PATIENT
  Age: 46 Year
  Sex: Female
  Weight: 65.76 kg

DRUGS (5)
  1. ZOLOFT [Suspect]
     Indication: DEPRESSION
     Dosage: SPLITTING THE 50 MG TABLET INTO HALF, UNK
     Route: 048
     Dates: start: 2013, end: 2013
  2. ZOLOFT [Suspect]
     Dosage: 50 MG DAILY
     Route: 048
     Dates: start: 2013, end: 201304
  3. MIRTAZAPINE [Suspect]
     Indication: INSOMNIA
     Dosage: 30 MG DAILY
     Dates: start: 2013
  4. COUMADIN [Concomitant]
     Indication: BLOOD DISORDER
     Dosage: 8 MG DAILY ON TUESDAY AND THURSDAY AND 6 MG DAILY ON OTHER WEEK DAYS
  5. ENALAPRIL [Concomitant]
     Indication: BLOOD PRESSURE ABNORMAL
     Dosage: 2.5 MG DAILY

REACTIONS (4)
  - Drug ineffective [Unknown]
  - Weight increased [Unknown]
  - Hunger [Unknown]
  - Hyperphagia [Unknown]
